FAERS Safety Report 8560526-6 (Version None)
Quarter: 2012Q3

REPORT INFORMATION
  Report Type: 
  Country: None (occurrence: None)
  Receive Date: 20120802
  Receipt Date: 20120725
  Transmission Date: 20120928
  Serious: Yes (Other)
  Sender: FDA-Public Use
  Company Number: JP-VERTEX PHARMACEUTICALS INC.-AE-2012-011128

PATIENT
  Age: 58 Year
  Sex: Male

DRUGS (4)
  1. URSO 250 [Concomitant]
     Route: 048
  2. TELAVIC (TELAPREVIR) [Suspect]
     Indication: HEPATITIS C
     Route: 048
     Dates: start: 20120612, end: 20120724
  3. RIBAVIRIN [Concomitant]
     Route: 048
     Dates: start: 20120612
  4. PEGINTERFERON ALFA-2B [Concomitant]
     Route: 058
     Dates: start: 20120612

REACTIONS (1)
  - ERYTHEMA MULTIFORME [None]
